FAERS Safety Report 5074722-6 (Version None)
Quarter: 2006Q3

REPORT INFORMATION
  Report Type: 
  Country: None (occurrence: None)
  Receive Date: 20060803
  Receipt Date: 20060720
  Transmission Date: 20061208
  Serious: Yes (Other)
  Sender: FDA-Public Use
  Company Number: CHNY2006BR02187

PATIENT
  Sex: Female

DRUGS (1)
  1. TRIMEDAL (NCH)  (VITAMIN C, TROXERUTIN, ACETAMINOPHEN (PARACETAMOL), P [Suspect]
     Indication: INFLUENZA
     Dosage: 500 MG, ORAL
     Route: 048

REACTIONS (2)
  - INFLUENZA [None]
  - SELF-MEDICATION [None]
